FAERS Safety Report 5086886-9 (Version None)
Quarter: 2006Q3

REPORT INFORMATION
  Report Type: 
  Country: None (occurrence: None)
  Receive Date: 20060818
  Receipt Date: 20060811
  Transmission Date: 20061208
  Serious: Yes (Other)
  Sender: FDA-Public Use
  Company Number: 163-21880-06080514

PATIENT
  Age: 78 Year
  Sex: Male

DRUGS (1)
  1. REVLIMID [Suspect]
     Indication: MYELODYSPLASTIC SYNDROME
     Dosage: 10 MG, 1 IN 1 D, ORAL
     Route: 048
     Dates: start: 20060721, end: 20060801

REACTIONS (5)
  - DYSPNOEA [None]
  - OEDEMA [None]
  - PNEUMONIA [None]
  - RASH [None]
  - SKIN EXFOLIATION [None]
